FAERS Safety Report 5962632-9 (Version None)
Quarter: 2008Q4

REPORT INFORMATION
  Report Type: 
  Country: None (occurrence: None)
  Receive Date: 20081121
  Receipt Date: 20081118
  Transmission Date: 20090506
  Serious: Yes (Life-Threatening)
  Sender: FDA-Public Use
  Company Number: PHHY2008BR28803

PATIENT
  Age: 51 Year
  Sex: Female
  Weight: 51 kg

DRUGS (2)
  1. TRILEPTAL [Suspect]
     Indication: MOOD ALTERED
     Dosage: 1 DF, ONCE/SINGLE
     Route: 048
     Dates: start: 20081114
  2. LISINOPRIL [Concomitant]
     Indication: HYPERTENSION
     Dosage: 1 DF, QD
     Route: 048

REACTIONS (9)
  - ABDOMINAL PAIN [None]
  - DIARRHOEA [None]
  - DYSGEUSIA [None]
  - FEELING COLD [None]
  - HEADACHE [None]
  - LIVER DISORDER [None]
  - PRURITUS GENERALISED [None]
  - SOFT TISSUE DISORDER [None]
  - SOMNOLENCE [None]
